FAERS Safety Report 9690556 (Version 1)
Quarter: 2013Q4

REPORT INFORMATION
  Report Type: Spontaneous
  Country: US (occurrence: US)
  Receive Date: 20131115
  Receipt Date: 20131115
  Transmission Date: 20140711
  Serious: No
  Sender: FDA-Public Use
  Company Number: US-009507513-1311USA003481

PATIENT
  Sex: Male

DRUGS (2)
  1. TEMODAR [Suspect]
     Dosage: 4 OF THE 100MG CAPSULES ONCE DAILY FOR 5 DAYS
     Route: 048
     Dates: start: 20130927, end: 2013
  2. TEMODAR [Suspect]
     Dosage: 2 OF THE 250 MG CAPSULES FOR 5 DAYS
     Route: 048
     Dates: start: 2013, end: 2013

REACTIONS (1)
  - Drug ineffective [Unknown]
